FAERS Safety Report 9087698 (Version 1)
Quarter: 2013Q1

REPORT INFORMATION
  Report Type: Spontaneous
  Country: GB (occurrence: GB)
  Receive Date: 20130201
  Receipt Date: 20130201
  Transmission Date: 20140127
  Serious: Yes (Other)
  Sender: FDA-Public Use
  Company Number: PHHY2013GB007296

PATIENT
  Age: 66 Year
  Sex: Male
  Weight: 75 kg

DRUGS (3)
  1. SIMVASTATIN [Suspect]
     Indication: CARDIOVASCULAR DISORDER
     Dosage: 20 MG, QD (AT NIGHT)
     Dates: start: 20130109, end: 20130110
  2. SALMETEROL [Concomitant]
     Dosage: 3 DF, UNK
     Route: 055
  3. SALBUTAMOL [Concomitant]
     Route: 055

REACTIONS (3)
  - Chest pain [Recovered/Resolved]
  - Muscle spasms [Recovered/Resolved]
  - Dyspnoea [Recovered/Resolved]
